FAERS Safety Report 17001851 (Version 2)
Quarter: 2019Q4

REPORT INFORMATION
  Report Type: Spontaneous
  Country: JP (occurrence: JP)
  Receive Date: 20191106
  Receipt Date: 20191218
  Transmission Date: 20200122
  Serious: Yes (Hospitalization)
  Sender: FDA-Public Use
  Company Number: JP-EISAI MEDICAL RESEARCH-EC-2019-064533

PATIENT
  Sex: Male
  Weight: 50 kg

DRUGS (1)
  1. LENVIMA [Suspect]
     Active Substance: LENVATINIB
     Indication: HEPATOCELLULAR CARCINOMA
     Route: 048
     Dates: start: 20190826

REACTIONS (2)
  - Interstitial lung disease [Recovering/Resolving]
  - Liver abscess [Recovering/Resolving]

NARRATIVE: CASE EVENT DATE: 20191024
